FAERS Safety Report 17024796 (Version 1)
Quarter: 2019Q4

REPORT INFORMATION
  Report Type: Spontaneous
  Country: US (occurrence: US)
  Receive Date: 20191113
  Receipt Date: 20191113
  Transmission Date: 20200122
  Serious: No
  Sender: FDA-Public Use
  Company Number: US-GLENMARK PHARMACEUTICALS-2019GMK043330

PATIENT
  Sex: Female

DRUGS (1)
  1. NYSTATIN/TRIAMCINOLONE ACETONIDE [Suspect]
     Active Substance: NYSTATIN\TRIAMCINOLONE ACETONIDE
     Indication: TINEA INFECTION
     Dosage: UNK
     Route: 065
     Dates: start: 2019

REACTIONS (3)
  - Drug ineffective for unapproved indication [Unknown]
  - Tinea infection [Unknown]
  - Condition aggravated [Unknown]

NARRATIVE: CASE EVENT DATE: 2019
